FAERS Safety Report 7043281-0 (Version None)
Quarter: 2010Q4

REPORT INFORMATION
  Report Type: 
  Country: None (occurrence: None)
  Receive Date: 20101013
  Receipt Date: 20091027
  Transmission Date: 20110411
  Serious: No
  Sender: FDA-Public Use
  Company Number: US-ASTRAZENECA-2009SE23045

PATIENT
  Sex: Female

DRUGS (6)
  1. SYMBICORT [Suspect]
     Dosage: 80/4.5, 2 PUFFS
     Route: 055
     Dates: start: 20090630
  2. PLAVIX [Suspect]
  3. ATACAND [Concomitant]
     Indication: BLOOD PRESSURE
  4. CRESTOR [Concomitant]
  5. NEXIUM [Concomitant]
  6. EVISTA [Concomitant]

REACTIONS (2)
  - BLOOD PRESSURE INCREASED [None]
  - EPISTAXIS [None]
